FAERS Safety Report 6962110-4 (Version None)
Quarter: 2010Q3

REPORT INFORMATION
  Report Type: 
  Country: None (occurrence: None)
  Receive Date: 20100901
  Receipt Date: 20100901
  Transmission Date: 20110219
  Serious: Yes (Other)
  Sender: FDA-Public Use
  Company Number: None

PATIENT
  Age: 63 Year
  Sex: Male
  Weight: 136.0791 kg

DRUGS (2)
  1. FENTANYL CITRATE [Suspect]
     Indication: BACK DISORDER
     Dosage: 8/18/2010 EVERY 3 DAYS UNK
     Dates: start: 20100818, end: 20100824
  2. FENTANYL CITRATE [Suspect]
     Indication: MUSCULOSKELETAL DISORDER
     Dosage: 8/18/2010 EVERY 3 DAYS UNK
     Dates: start: 20100818, end: 20100824

REACTIONS (17)
  - ABNORMAL BEHAVIOUR [None]
  - AMNESIA [None]
  - ASTHENIA [None]
  - BURNING SENSATION [None]
  - CHEST PAIN [None]
  - CONFUSIONAL STATE [None]
  - DECREASED APPETITE [None]
  - HALLUCINATION [None]
  - INSOMNIA [None]
  - MENTAL DISORDER [None]
  - MENTAL STATUS CHANGES [None]
  - MIGRAINE [None]
  - MOOD ALTERED [None]
  - MUSCULAR WEAKNESS [None]
  - RASH [None]
  - TREMOR [None]
  - VISUAL IMPAIRMENT [None]
